FAERS Safety Report 7057768-8 (Version None)
Quarter: 2010Q4

REPORT INFORMATION
  Report Type: 
  Country: None (occurrence: None)
  Receive Date: 20101022
  Receipt Date: 20101014
  Transmission Date: 20110411
  Serious: Yes (Other)
  Sender: FDA-Public Use
  Company Number: JP-SANOFI-AVENTIS-2010SA063133

PATIENT
  Age: 71 Year
  Sex: Male
  Weight: 50 kg

DRUGS (14)
  1. PLAVIX [Suspect]
     Indication: ANGINA UNSTABLE
     Route: 048
     Dates: start: 20090807, end: 20100620
  2. PLAVIX [Suspect]
     Route: 048
     Dates: start: 20100621
  3. ASPIRIN [Concomitant]
     Indication: ANGINA UNSTABLE
     Route: 048
     Dates: start: 20090807
  4. ITOROL [Concomitant]
     Indication: ANGINA UNSTABLE
     Route: 048
     Dates: start: 20090807
  5. DIGOXIN [Concomitant]
     Route: 048
  6. CANDESARTAN CILEXETIL [Concomitant]
     Route: 048
  7. GLYBURIDE [Concomitant]
     Route: 048
  8. GLYBURIDE [Concomitant]
     Route: 048
  9. GLUCOBAY [Concomitant]
     Route: 048
  10. GASTER D [Concomitant]
     Route: 048
  11. TORASEMIDE [Concomitant]
     Route: 048
     Dates: end: 20100620
  12. ITAVASTATIN [Concomitant]
     Route: 048
  13. NORVASC [Concomitant]
     Route: 048
     Dates: start: 20090814
  14. ZETIA [Concomitant]
     Route: 048
     Dates: start: 20100210

REACTIONS (2)
  - BLOOD CREATININE INCREASED [None]
  - RENAL IMPAIRMENT [None]
